FAERS Safety Report 7971195-8 (Version None)
Quarter: 2011Q4

REPORT INFORMATION
  Report Type: 
  Country: None (occurrence: None)
  Receive Date: 20111212
  Receipt Date: 20111205
  Transmission Date: 20120403
  Serious: Yes (Hospitalization)
  Sender: FDA-Public Use
  Company Number: US-US-EMD SERONO, INC.-7015474

PATIENT
  Sex: Male

DRUGS (17)
  1. ALLOPURINOL [Concomitant]
  2. BISOPROLOL FUMARATE AND HYDROCHLOROTHIAZIDE [Concomitant]
  3. ZYRTEC [Concomitant]
  4. IBUPROFEN (ADVIL) [Concomitant]
     Indication: PREMEDICATION
  5. CELEXA [Concomitant]
  6. CALTRATE PLUS D [Concomitant]
  7. VITAMIN D [Concomitant]
  8. NORVASC [Concomitant]
  9. GABAPENTIN [Concomitant]
  10. ASPIRIN [Concomitant]
  11. MULTI-VITAMIN [Concomitant]
  12. STRATTERA [Concomitant]
  13. VIAGRA [Concomitant]
  14. REBIF [Suspect]
     Indication: MULTIPLE SCLEROSIS
     Route: 058
     Dates: start: 20100410
  15. TRAZODONE HCL [Concomitant]
  16. VYTORIN [Concomitant]
  17. SYNTHROID [Concomitant]

REACTIONS (8)
  - DEPRESSION [None]
  - MUSCULAR WEAKNESS [None]
  - ALCOHOL POISONING [None]
  - INFLUENZA LIKE ILLNESS [None]
  - INJECTION SITE PAIN [None]
  - CENTRAL NERVOUS SYSTEM LESION [None]
  - MUSCLE SPASMS [None]
  - SUICIDAL IDEATION [None]
